FAERS Safety Report 5321914-4 (Version None)
Quarter: 2007Q2

REPORT INFORMATION
  Report Type: 
  Country: None (occurrence: None)
  Receive Date: 20070508
  Receipt Date: 20070508
  Transmission Date: 20071010
  Serious: Yes (Other)
  Sender: FDA-Public Use
  Company Number: None

PATIENT
  Sex: Female
  Weight: 79.1527 kg

DRUGS (2)
  1. LO/OVRAL [Suspect]
     Indication: DRUG THERAPY
     Dosage: 1 PO QD
     Route: 048
  2. LO/OVRAL [Suspect]
     Indication: MULTIPAROUS
     Dosage: 1 PO QD
     Route: 048

REACTIONS (4)
  - ABDOMINAL DISTENSION [None]
  - OEDEMA PERIPHERAL [None]
  - PHARMACEUTICAL PRODUCT COMPLAINT [None]
  - WEIGHT INCREASED [None]
